FAERS Safety Report 10183109 (Version 1)
Quarter: 2014Q2

REPORT INFORMATION
  Report Type: Spontaneous
  Country: CA (occurrence: CA)
  Receive Date: 20140520
  Receipt Date: 20140520
  Transmission Date: 20141212
  Serious: Yes (Other)
  Sender: FDA-Public Use
  Company Number: CA-009507513-1405CAN007596

PATIENT
  Age: 64 Year
  Sex: Female

DRUGS (4)
  1. VICTRELIS [Suspect]
     Dosage: 800 MG, TID
     Route: 048
  2. RIBAVIRIN [Suspect]
     Dosage: UNK
     Route: 048
  3. PEGASYS [Suspect]
     Dosage: 180 MICROGRAM, QW
     Route: 058
  4. EPOETIN ALFA [Concomitant]
     Dosage: 40000 IU, QW
     Route: 065

REACTIONS (2)
  - Intestinal obstruction [Unknown]
  - Sepsis [Unknown]
